FAERS Safety Report 9105068 (Version 2)
Quarter: 2013Q1

REPORT INFORMATION
  Report Type: Spontaneous
  Country: IT (occurrence: IT)
  Receive Date: 20130220
  Receipt Date: 20130227
  Transmission Date: 20140127
  Serious: Yes (Hospitalization)
  Sender: FDA-Public Use
  Company Number: IT-SANOFI-AVENTIS-2013SA014099

PATIENT
  Age: 93 Year
  Sex: Female

DRUGS (3)
  1. CLEXANE [Suspect]
     Indication: PULMONARY EMBOLISM
     Route: 058
     Dates: start: 20130131, end: 20130207
  2. COUMADIN [Suspect]
     Indication: PULMONARY EMBOLISM
     Dosage: DOSE:4.5 UNIT(S)
     Route: 048
     Dates: start: 20130204, end: 20130207
  3. UNASYN [Concomitant]
     Dosage: DOSE:3 UNIT(S)
     Route: 042
     Dates: start: 20130131, end: 20130206

REACTIONS (2)
  - International normalised ratio increased [Unknown]
  - Medication error [Unknown]
